FAERS Safety Report 4857536-9 (Version None)
Quarter: 2005Q4

REPORT INFORMATION
  Report Type: 
  Country: None (occurrence: None)
  Receive Date: 20051219
  Receipt Date: 20050516
  Transmission Date: 20060501
  Serious: No
  Sender: FDA-Public Use
  Company Number: US-GLAXOSMITHKLINE-A0558730A

PATIENT
  Age: 61 Year
  Sex: Female

DRUGS (2)
  1. NICODERM CQ [Suspect]
     Dates: start: 20050220
  2. NICODERM CQ [Suspect]
     Dates: start: 20050220

REACTIONS (4)
  - FEELING HOT [None]
  - HEADACHE [None]
  - MALAISE [None]
  - NAUSEA [None]
